FAERS Safety Report 14264409 (Version 1)
Quarter: 2017Q4

REPORT INFORMATION
  Report Type: Spontaneous
  Country: US (occurrence: US)
  Receive Date: 20171208
  Receipt Date: 20171208
  Transmission Date: 20180321
  Serious: No
  Sender: FDA-Public Use
  Company Number: US-JAZZ-2017-US-011872

PATIENT
  Sex: Female

DRUGS (15)
  1. XYREM [Suspect]
     Active Substance: SODIUM OXYBATE
     Indication: CATAPLEXY
     Dosage: 2 G, BID
     Route: 048
     Dates: start: 201401, end: 2015
  2. XYREM [Suspect]
     Active Substance: SODIUM OXYBATE
     Dosage: 3 G, BID
     Route: 048
     Dates: start: 201506, end: 201511
  3. CLINDAMYCIN HCL [Concomitant]
     Active Substance: CLINDAMYCIN HYDROCHLORIDE
  4. KARIVA [Concomitant]
     Active Substance: DESOGESTREL\ETHINYL ESTRADIOL
  5. XYREM [Suspect]
     Active Substance: SODIUM OXYBATE
     Indication: NARCOLEPSY
     Dosage: 2.25G, BID
     Route: 048
     Dates: start: 200307, end: 2003
  6. DEXEDRINE [Concomitant]
     Active Substance: DEXTROAMPHETAMINE SULFATE
  7. IBUPROFEN. [Concomitant]
     Active Substance: IBUPROFEN
  8. PRILOSEC [Concomitant]
     Active Substance: OMEPRAZOLE MAGNESIUM
  9. HAIR, SKIN + NAILS                 /00772301/ [Concomitant]
  10. ADDERALL [Concomitant]
     Active Substance: AMPHETAMINE ASPARTATE\AMPHETAMINE SULFATE\DEXTROAMPHETAMINE SACCHARATE\DEXTROAMPHETAMINE SULFATE
  11. VIORELE [Concomitant]
     Active Substance: DESOGESTREL\ETHINYL ESTRADIOL
  12. XYREM [Suspect]
     Active Substance: SODIUM OXYBATE
     Dosage: 3.25 G, BID
     Route: 048
     Dates: start: 201511
  13. NORCO [Concomitant]
     Active Substance: ACETAMINOPHEN\HYDROCODONE BITARTRATE
  14. VITAMIN D                          /00107901/ [Concomitant]
     Active Substance: ERGOCALCIFEROL
  15. FLOMAX [Concomitant]
     Active Substance: TAMSULOSIN HYDROCHLORIDE

REACTIONS (1)
  - Nasopharyngitis [Not Recovered/Not Resolved]
